FAERS Safety Report 7329829-7 (Version None)
Quarter: 2011Q1

REPORT INFORMATION
  Report Type: 
  Country: None (occurrence: None)
  Receive Date: 20110303
  Receipt Date: 20110218
  Transmission Date: 20110831
  Serious: Yes (Hospitalization)
  Sender: FDA-Public Use
  Company Number: IT-ELI_LILLY_AND_COMPANY-IT201101005200

PATIENT
  Sex: Male
  Weight: 60 kg

DRUGS (2)
  1. ZYPADHERA [Suspect]
     Indication: SCHIZOPHRENIA, PARANOID TYPE
     Dosage: 405 MG, UNK
     Route: 030
     Dates: start: 20101221
  2. ZYPREXA [Suspect]
     Indication: SCHIZOPHRENIA, PARANOID TYPE
     Dosage: 20 MG, DAILY (1/D)
     Route: 048
     Dates: start: 20101213, end: 20101221

REACTIONS (6)
  - VOMITING [None]
  - SOPOR [None]
  - FATIGUE [None]
  - DYSSTASIA [None]
  - SEDATION [None]
  - PSYCHOTIC DISORDER [None]
